FAERS Safety Report 12194235 (Version 1)
Quarter: 2016Q1

REPORT INFORMATION
  Report Type: Spontaneous
  Country: US (occurrence: None)
  Receive Date: 20160318
  Receipt Date: 20160318
  Transmission Date: 20160526
  Serious: Yes (Hospitalization)
  Sender: FDA-Public Use
  Company Number: None

PATIENT
  Age: 72 Year
  Sex: Female
  Weight: 86.64 kg

DRUGS (9)
  1. BYSTOLIC [Concomitant]
     Active Substance: NEBIVOLOL HYDROCHLORIDE
  2. NORVASC [Concomitant]
     Active Substance: AMLODIPINE BESYLATE
  3. XELJANZ [Suspect]
     Active Substance: TOFACITINIB CITRATE
     Indication: RHEUMATOID ARTHRITIS
     Dosage: 1 PILL TWICE DAILY TAKEN BY MOUTH
     Route: 048
     Dates: start: 20151230, end: 20160306
  4. SYNTHROID [Concomitant]
     Active Substance: LEVOTHYROXINE SODIUM
  5. VITAMIN C [Concomitant]
     Active Substance: ASCORBIC ACID
  6. CALCIUM [Concomitant]
     Active Substance: CALCIUM
  7. BABY ASPIRIN [Concomitant]
     Active Substance: ASPIRIN
  8. HCTZ [Concomitant]
     Active Substance: HYDROCHLOROTHIAZIDE
  9. FISH OIL [Concomitant]
     Active Substance: FISH OIL

REACTIONS (3)
  - Diarrhoea [None]
  - Infection [None]
  - Gastrointestinal pain [None]

NARRATIVE: CASE EVENT DATE: 20160310
